FAERS Safety Report 10245951 (Version 1)
Quarter: 2014Q2

REPORT INFORMATION
  Report Type: Spontaneous
  Country: NL (occurrence: NL)
  Receive Date: 20140619
  Receipt Date: 20140619
  Transmission Date: 20141212
  Serious: Yes (Death)
  Sender: FDA-Public Use
  Company Number: NL-AMGEN INC.-NLDSP2014044769

PATIENT
  Age: 73 Year
  Sex: Male

DRUGS (1)
  1. XGEVA [Suspect]
     Indication: NEPHROGENIC ANAEMIA
     Dosage: 1.7 ML (70MG/ML), Q4WK
     Route: 058
     Dates: start: 20130125, end: 20140612

REACTIONS (1)
  - Death [Fatal]
